FAERS Safety Report 24437848 (Version 2)
Quarter: 2025Q3

REPORT INFORMATION
  Report Type: Spontaneous
  Country: MY (occurrence: MY)
  Receive Date: 20241015
  Receipt Date: 20250801
  Transmission Date: 20251020
  Serious: Yes (Other)
  Sender: ELI LILLY AND COMPANY
  Company Number: MY-Merck Healthcare KGaA-2024052953

PATIENT

DRUGS (1)
  1. ERBITUX [Suspect]
     Active Substance: CETUXIMAB
     Indication: Product used for unknown indication
     Route: 065
     Dates: start: 202211

REACTIONS (3)
  - Neuropathy peripheral [Recovered/Resolved]
  - Chest pain [Recovered/Resolved]
  - Liver function test abnormal [Recovered/Resolved]
